FAERS Safety Report 13753209 (Version 2)
Quarter: 2017Q3

REPORT INFORMATION
  Report Type: Report from Study
  Country: CA (occurrence: CA)
  Receive Date: 20170713
  Receipt Date: 20170725
  Transmission Date: 20171127
  Serious: Yes (Life-Threatening)
  Sender: FDA-Public Use
  Company Number: CA-JNJFOC-20170706959

PATIENT
  Age: 31 Year
  Sex: Female
  Weight: 65 kg

DRUGS (2)
  1. REMICADE [Suspect]
     Active Substance: INFLIXIMAB
     Indication: CROHN^S DISEASE
     Route: 042
     Dates: start: 20170607
  2. REMICADE [Suspect]
     Active Substance: INFLIXIMAB
     Indication: CROHN^S DISEASE
     Route: 042
     Dates: start: 20070701

REACTIONS (2)
  - Thyroid cancer [Unknown]
  - Drug level below therapeutic [Unknown]

NARRATIVE: CASE EVENT DATE: 20170612
